FAERS Safety Report 12845561 (Version 1)
Quarter: 2016Q4

REPORT INFORMATION
  Report Type: Spontaneous
  Country: US (occurrence: US)
  Receive Date: 20161013
  Receipt Date: 20161013
  Transmission Date: 20170207
  Serious: No
  Sender: FDA-Public Use
  Company Number: US-JAZZ-2016-US-013780

PATIENT
  Sex: Female

DRUGS (23)
  1. XYREM [Suspect]
     Active Substance: SODIUM OXYBATE
     Dosage: 3.75 G, BID
     Route: 048
     Dates: start: 201604
  2. CYMBALTA [Concomitant]
     Active Substance: DULOXETINE HYDROCHLORIDE
  3. TRETINOIN. [Concomitant]
     Active Substance: TRETINOIN
  4. METHOTREXATE. [Concomitant]
     Active Substance: METHOTREXATE
  5. SPIRONOLACTONE. [Concomitant]
     Active Substance: SPIRONOLACTONE
  6. OMEGA 3-6-9 COMPLEX [Concomitant]
  7. XYREM [Suspect]
     Active Substance: SODIUM OXYBATE
     Indication: NARCOLEPSY
     Dosage: 2.25 G, BID
     Route: 048
     Dates: start: 200309, end: 200310
  8. TRINESSA [Concomitant]
     Active Substance: ETHINYL ESTRADIOL\NORGESTIMATE
  9. MULTIVITAMIN [Concomitant]
     Active Substance: VITAMINS
  10. CYCLOBENZAPRINE [Concomitant]
     Active Substance: CYCLOBENZAPRINE
  11. TOPAMAX [Concomitant]
     Active Substance: TOPIRAMATE
  12. LYRICA [Concomitant]
     Active Substance: PREGABALIN
  13. XYREM [Suspect]
     Active Substance: SODIUM OXYBATE
     Dosage: DOSE ADJUSTMENTS
     Route: 048
     Dates: start: 200310, end: 201604
  14. ABILIFY [Concomitant]
     Active Substance: ARIPIPRAZOLE
  15. GEODON [Concomitant]
     Active Substance: ZIPRASIDONE HYDROCHLORIDE\ZIPRASIDONE MESYLATE
  16. LASIX [Concomitant]
     Active Substance: FUROSEMIDE
  17. MERCAPTOPURINE. [Concomitant]
     Active Substance: MERCAPTOPURINE
  18. ACYCLOVIR. [Concomitant]
     Active Substance: ACYCLOVIR
  19. POTASSIUM GLUCONATE ER [Concomitant]
  20. NUVIGIL [Concomitant]
     Active Substance: ARMODAFINIL
  21. DULOXETINE HYDROCHLORIDE. [Concomitant]
     Active Substance: DULOXETINE HYDROCHLORIDE
  22. MAGNESIUM GLUCONATE [Concomitant]
     Active Substance: MAGNESIUM GLUCONATE
  23. VITAMIN D [Concomitant]
     Active Substance: CHOLECALCIFEROL

REACTIONS (1)
  - Intentional product use issue [Unknown]
